FAERS Safety Report 8320704-8 (Version None)
Quarter: 2012Q2

REPORT INFORMATION
  Report Type: 
  Country: None (occurrence: None)
  Receive Date: 20120430
  Receipt Date: 20120419
  Transmission Date: 20120825
  Serious: Yes (Hospitalization)
  Sender: FDA-Public Use
  Company Number: US-JNJFOC-20120405079

PATIENT
  Sex: Male
  Weight: 46.2 kg

DRUGS (11)
  1. PERIACTIN [Concomitant]
  2. METHOTREXATE [Concomitant]
  3. FERRLECIT [Concomitant]
  4. ZOFRAN [Concomitant]
  5. FLAGYL [Concomitant]
  6. REMICADE [Suspect]
     Indication: CROHN'S DISEASE
     Route: 042
     Dates: start: 20120413
  7. NEXIUM [Concomitant]
  8. ANTIBIOTICS [Concomitant]
     Indication: INFLAMMATORY BOWEL DISEASE
  9. IRON DEXTRAN [Concomitant]
  10. REMICADE [Suspect]
     Route: 042
     Dates: start: 20110929
  11. FOLIC ACID [Concomitant]

REACTIONS (1)
  - CROHN'S DISEASE [None]
